FAERS Safety Report 9370176 (Version 1)
Quarter: 2013Q2

REPORT INFORMATION
  Report Type: Spontaneous
  Country: RS (occurrence: RS)
  Receive Date: 20130626
  Receipt Date: 20130627
  Transmission Date: 20140414
  Serious: Yes (Other)
  Sender: FDA-Public Use
  Company Number: RS-TEVA-412822ISR

PATIENT
  Age: 45 Year
  Sex: Male
  Weight: 85 kg

DRUGS (5)
  1. CISPLATIN TEVA [Suspect]
     Indication: METASTASES TO OESOPHAGUS
     Route: 042
     Dates: start: 20130523, end: 20130523
  2. DEXASON 4MG [Concomitant]
     Dosage: 3 AMPOULES
  3. RANITIDINE 50MG [Concomitant]
     Dosage: 1 AMPOULE
     Route: 042
  4. DORMICUM 15MG [Concomitant]
  5. ONDANSAN 8MG [Concomitant]

REACTIONS (4)
  - Rash macular [Recovered/Resolved]
  - Pruritus [Recovered/Resolved]
  - Skin burning sensation [Recovered/Resolved]
  - Oropharyngeal pain [Recovered/Resolved]
